FAERS Safety Report 21253517 (Version 2)
Quarter: 2022Q3

REPORT INFORMATION
  Report Type: Spontaneous
  Country: JP (occurrence: JP)
  Receive Date: 20220825
  Receipt Date: 20220830
  Transmission Date: 20221027
  Serious: Yes (Other)
  Sender: FDA-Public Use
  Company Number: JP-TAIHO-AB220767_P_1

PATIENT
  Age: 9 Decade
  Sex: Female

DRUGS (14)
  1. ABRAXANE [Suspect]
     Active Substance: PACLITAXEL
     Indication: Gastric cancer
     Dosage: DETAILS NOT REPORTED
     Route: 041
     Dates: start: 20190711
  2. ABRAXANE [Suspect]
     Active Substance: PACLITAXEL
     Dosage: AT A REDUCED DOSE, DETAILS NOT REPORTED, WITH SUSPENSION
     Route: 041
  3. ABRAXANE [Suspect]
     Active Substance: PACLITAXEL
     Dosage: DOSE NOT REPORTED
     Route: 041
     Dates: end: 20211215
  4. ABRAXANE [Suspect]
     Active Substance: PACLITAXEL
     Dosage: DETAILS NOT REPORTED
     Route: 041
  5. ABRAXANE [Suspect]
     Active Substance: PACLITAXEL
     Dosage: AT A REDUCED DOSE, DETAILS NOT REPORTED, WITH SUSPENSION
     Route: 041
  6. ABRAXANE [Suspect]
     Active Substance: PACLITAXEL
     Dosage: DOSE NOT REPORTED
     Route: 041
  7. CYRAMZA [Concomitant]
     Active Substance: RAMUCIRUMAB
     Indication: Gastric cancer
     Dosage: DETAILS NOT REPORTED
     Route: 041
     Dates: start: 20190711, end: 20211215
  8. DIOVAN [Concomitant]
     Active Substance: VALSARTAN
     Indication: Product used for unknown indication
     Dosage: DETAILS NOT REPORTED
     Route: 048
  9. CRESTOR [Concomitant]
     Active Substance: ROSUVASTATIN CALCIUM
     Indication: Product used for unknown indication
     Dosage: DETAILS NOT REPORTED
     Route: 048
  10. MOSAPRIDE CITRATE [Concomitant]
     Active Substance: MOSAPRIDE CITRATE
     Indication: Product used for unknown indication
     Dosage: DETAILS NOT REPORTED
     Route: 048
  11. MAGNESIUM OXIDE [Concomitant]
     Active Substance: MAGNESIUM OXIDE
     Indication: Product used for unknown indication
     Dosage: DETAILS NOT REPORTED
     Route: 048
  12. HERBALS [Concomitant]
     Active Substance: HERBALS
     Indication: Product used for unknown indication
     Dosage: DETAILS NOT REPORTED
     Route: 048
  13. LOXOPROFEN SODIUM [Concomitant]
     Active Substance: LOXOPROFEN SODIUM
     Indication: Product used for unknown indication
     Dosage: DETAILS NOT REPORTED
     Route: 061
  14. FUROSEMIDE [Concomitant]
     Active Substance: FUROSEMIDE
     Indication: Cardiac failure
     Dosage: DETAILS NOT REPORTED
     Route: 065

REACTIONS (7)
  - Neutrophil count decreased [Recovered/Resolved]
  - Neuropathy peripheral [Unknown]
  - Forearm fracture [Recovered/Resolved]
  - Cardiac failure [Recovering/Resolving]
  - Off label use [Unknown]
  - Pericardial effusion [Unknown]
  - Fall [Recovered/Resolved]

NARRATIVE: CASE EVENT DATE: 20200820
